FAERS Safety Report 19833206 (Version 2)
Quarter: 2021Q3

REPORT INFORMATION
  Report Type: Report from Study
  Country: US (occurrence: US)
  Receive Date: 20210915
  Receipt Date: 20210927
  Transmission Date: 20211014
  Serious: Yes (Hospitalization)
  Sender: FDA-Public Use
  Company Number: US-CELGENEUS-USA-20210902277

PATIENT
  Age: 38 Year
  Sex: Female
  Weight: 75 kg

DRUGS (15)
  1. TIZANIDINE HCL [Concomitant]
     Active Substance: TIZANIDINE HYDROCHLORIDE
     Indication: MUSCLE SPASMS
     Dosage: 4 MG X 3 X 1 DAYS
     Route: 048
     Dates: start: 20190118
  2. CITRACAL [Concomitant]
     Active Substance: CALCIUM CITRATE
     Indication: PROPHYLAXIS
     Dosage: 3 CAPSULE X 1 X 1 DAYS
     Route: 048
     Dates: start: 20201018
  3. DULOXETINE HCL [Concomitant]
     Active Substance: DULOXETINE HYDROCHLORIDE
     Indication: DEPRESSION
     Dosage: 30 MG X 2 X 1 DAYS
     Route: 048
     Dates: start: 20210617
  4. ONDANSETRON HCL [Concomitant]
     Active Substance: ONDANSETRON HYDROCHLORIDE
     Indication: NAUSEA
     Dosage: 4 MG X PRN
     Route: 048
     Dates: start: 20200709
  5. TYLENOL [Concomitant]
     Active Substance: ACETAMINOPHEN
     Indication: PROPHYLAXIS
     Dosage: 500 MG X PRN
     Route: 048
     Dates: start: 202007
  6. TRAMADOL. [Concomitant]
     Active Substance: TRAMADOL
     Indication: NEURALGIA
     Dosage: 50 MG X 3 X 1 DAYS
     Route: 048
     Dates: start: 20210617
  7. BIOTIN [Concomitant]
     Active Substance: BIOTIN
     Indication: PROPHYLAXIS
     Dosage: 1 CAPSULE X 1 X 1 DAYS
     Route: 048
     Dates: start: 202006
  8. GINGER. [Concomitant]
     Active Substance: GINGER
     Indication: VERTIGO
     Dosage: 500 MG X PRN
     Route: 048
     Dates: start: 20200422
  9. OXCARBAZEPINE. [Concomitant]
     Active Substance: OXCARBAZEPINE
     Indication: NEURALGIA
     Dosage: 300?600 MG X 2 X 1 DAYS
     Route: 048
     Dates: start: 20200522
  10. PROBIOTIC [Concomitant]
     Active Substance: PROBIOTICS NOS
     Indication: PROPHYLAXIS
     Dosage: 2 CAPSULE X 1 X 1 DAYS
     Route: 048
     Dates: start: 20201018
  11. MULTIVITAMIN [Concomitant]
     Active Substance: VITAMINS
     Indication: PROPHYLAXIS
     Dosage: 1 TABLET X 1 X 1 DAYS
     Route: 048
     Dates: start: 20201018
  12. PREGABALIN. [Concomitant]
     Active Substance: PREGABALIN
     Indication: NEURALGIA
     Dosage: 150 MG X 3 X 1 DAYS
     Route: 048
     Dates: start: 20200522
  13. VITAMIN D3 [Concomitant]
     Active Substance: CHOLECALCIFEROL
     Indication: VITAMIN D DEFICIENCY
     Dosage: 5,000 IU X 1 X 1 DAYS
     Route: 048
     Dates: start: 20200318
  14. OZANIMOD. [Suspect]
     Active Substance: OZANIMOD
     Indication: MULTIPLE SCLEROSIS
     Dosage: 0.23 MG X 1 X 1 DAYS
     Route: 048
     Dates: start: 20200522, end: 20200525
  15. ARMODAFINIL. [Concomitant]
     Active Substance: ARMODAFINIL
     Indication: FATIGUE
     Dosage: 250 MG X 1 X 1 DAYS
     Route: 048
     Dates: start: 20200304

REACTIONS (1)
  - COVID-19 [Recovered/Resolved]

NARRATIVE: CASE EVENT DATE: 20210819
